FAERS Safety Report 17109463 (Version 1)
Quarter: 2019Q4

REPORT INFORMATION
  Report Type: Spontaneous
  Country: US (occurrence: US)
  Receive Date: 20191107
  Receipt Date: 20191107
  Transmission Date: 20200122
  Serious: Yes (Death)
  Sender: FDA-Public Use
  Company Number: None

PATIENT
  Age: 66 Year
  Sex: Female
  Weight: 93.44 kg

DRUGS (19)
  1. GAMUNEX-C [Suspect]
     Active Substance: HUMAN IMMUNOGLOBULIN G
     Indication: IMMUNODEFICIENCY COMMON VARIABLE
     Route: 058
     Dates: start: 20190809, end: 20190820
  2. GAMUNEX-C [Suspect]
     Active Substance: HUMAN IMMUNOGLOBULIN G
     Indication: IMMUNODEFICIENCY COMMON VARIABLE
     Route: 058
     Dates: start: 20190809, end: 20190830
  3. MELATONIN [Concomitant]
     Active Substance: MELATONIN
  4. DETROL LA [Concomitant]
     Active Substance: TOLTERODINE TARTRATE
  5. MOBIC [Concomitant]
     Active Substance: MELOXICAM
  6. PREMARIN [Concomitant]
     Active Substance: ESTROGENS, CONJUGATED
  7. TYLENOL [Concomitant]
     Active Substance: ACETAMINOPHEN
  8. VITAMIN D3 [Concomitant]
     Active Substance: CHOLECALCIFEROL
  9. ASPIRIN. [Concomitant]
     Active Substance: ASPIRIN
  10. SKELAXIN [Concomitant]
     Active Substance: METAXALONE
  11. LYRICA [Concomitant]
     Active Substance: PREGABALIN
  12. PRILOSEC [Concomitant]
     Active Substance: OMEPRAZOLE MAGNESIUM
  13. VALTREX [Concomitant]
     Active Substance: VALACYCLOVIR HYDROCHLORIDE
  14. ZANTAC [Concomitant]
     Active Substance: RANITIDINE HYDROCHLORIDE
  15. INCRUSE ELLIPTA [Concomitant]
     Active Substance: UMECLIDINIUM BROMIDE
  16. LIDODERM [Concomitant]
     Active Substance: LIDOCAINE
  17. MULTIVITAMIN [Concomitant]
     Active Substance: VITAMINS
  18. TIZANIDINE. [Concomitant]
     Active Substance: TIZANIDINE
  19. SINGULAIR [Concomitant]
     Active Substance: MONTELUKAST SODIUM

REACTIONS (1)
  - Sudden death [None]

NARRATIVE: CASE EVENT DATE: 20190905
